FAERS Safety Report 7804444-7 (Version None)
Quarter: 2011Q4

REPORT INFORMATION
  Report Type: 
  Country: None (occurrence: None)
  Receive Date: 20111010
  Receipt Date: 20110928
  Transmission Date: 20120403
  Serious: Yes (Hospitalization, Other)
  Sender: FDA-Public Use
  Company Number: US-BAYER-2011-015287

PATIENT
  Age: 26 Year
  Sex: Female
  Weight: 81.633 kg

DRUGS (7)
  1. ASCORBIC ACID [Concomitant]
     Dosage: UNK UNK, PRN
  2. ANTIBIOTICS [Concomitant]
     Dosage: UNK UNK, PRN
  3. EFFEXOR [Concomitant]
     Indication: ANXIETY
     Dosage: UNK UNK, QD
     Dates: start: 20090101
  4. YASMIN [Suspect]
     Indication: CONTRACEPTION
     Dosage: UNK
     Dates: start: 20061201, end: 20100101
  5. DROSPIRENONE AND ETHINYL ESTRADIOL [Suspect]
     Indication: PRODUCT USED FOR UNKNOWN INDICATION
     Dosage: UNK
     Dates: start: 20061201, end: 20100101
  6. NSAID'S [Concomitant]
     Dosage: UNK UNK, PRN
  7. VALTREX [Concomitant]
     Indication: ANTIVIRAL TREATMENT
     Dosage: UNK UNK, QD
     Dates: start: 20060101, end: 20090101

REACTIONS (8)
  - PULMONARY EMBOLISM [None]
  - EMOTIONAL DISTRESS [None]
  - ANXIETY [None]
  - SCAR [None]
  - PAIN [None]
  - MENTAL DISORDER [None]
  - PSYCHIATRIC SYMPTOM [None]
  - PULMONARY INFARCTION [None]
